FAERS Safety Report 6078529-2 (Version None)
Quarter: 2009Q1

REPORT INFORMATION
  Report Type: 
  Country: None (occurrence: None)
  Receive Date: 20090212
  Receipt Date: 20090212
  Transmission Date: 20090719
  Serious: Yes (Other)
  Sender: FDA-Public Use
  Company Number: None

PATIENT
  Age: 43 Year
  Sex: Female
  Weight: 95.2554 kg

DRUGS (2)
  1. OXYCODONE HCL [Suspect]
     Indication: BACK PAIN
     Dosage: 20MG ER TABLET -RX#360040- 3 TIMES DAILY PO
     Route: 048
     Dates: start: 20090115, end: 20090215
  2. OXYCODONE HCL [Suspect]
     Indication: PAIN MANAGEMENT
     Dosage: 20MG ER TABLET -RX#360040- 3 TIMES DAILY PO
     Route: 048
     Dates: start: 20090115, end: 20090215

REACTIONS (7)
  - ABDOMINAL DISCOMFORT [None]
  - DRUG EFFECT DECREASED [None]
  - HEADACHE [None]
  - MALAISE [None]
  - RHINORRHOEA [None]
  - THERAPEUTIC RESPONSE UNEXPECTED WITH DRUG SUBSTITUTION [None]
  - WITHDRAWAL SYNDROME [None]
